FAERS Safety Report 4470158-7 (Version None)
Quarter: 2004Q3

REPORT INFORMATION
  Report Type: 
  Country: None (occurrence: None)
  Receive Date: 20040910
  Receipt Date: 20040723
  Transmission Date: 20050211
  Serious: No
  Sender: FDA-Public Use
  Company Number: 2004225878US

PATIENT
  Age: 61 Year
  Sex: Female
  Weight: 63.5 kg

DRUGS (5)
  1. BEXTRA [Suspect]
     Indication: ARTHRITIS
     Dates: start: 20020701
  2. SYNTHROID [Concomitant]
  3. DILANTIN [Concomitant]
  4. LANTUS [Concomitant]
  5. HUMALOG [Concomitant]

REACTIONS (1)
  - TRIGGER FINGER [None]
